FAERS Safety Report 20533008 (Version 3)
Quarter: 2022Q1

REPORT INFORMATION
  Report Type: Spontaneous
  Country: JP (occurrence: JP)
  Receive Date: 20220301
  Receipt Date: 20220316
  Transmission Date: 20220424
  Serious: Yes (Hospitalization, Other)
  Sender: FDA-Public Use
  Company Number: JP-MSD-M2022-07636

PATIENT
  Age: 41 Year
  Sex: Male
  Weight: 68 kg

DRUGS (16)
  1. MOLNUPIRAVIR [Suspect]
     Active Substance: MOLNUPIRAVIR
     Indication: COVID-19 treatment
     Dosage: 800 MILLIGRAM, BID
     Route: 048
     Dates: start: 20220219, end: 20220224
  2. ALFACALCIDOL [Concomitant]
     Active Substance: ALFACALCIDOL
     Dosage: UNK
     Route: 065
  3. FOSRENOL [Concomitant]
     Active Substance: LANTHANUM CARBONATE
     Dosage: UNK
     Route: 065
  4. EVOCALCET [Concomitant]
     Active Substance: EVOCALCET
     Dosage: UNK
     Route: 065
  5. FERRIC CITRATE ANHYDROUS [Concomitant]
     Active Substance: FERRIC CITRATE ANHYDROUS
     Dosage: UNK
     Route: 065
  6. FEXOFENADINE HYDROCHLORIDE [Concomitant]
     Active Substance: FEXOFENADINE HYDROCHLORIDE
     Dosage: UNK
     Route: 065
  7. GLYCOSAMINOGLYCANS [Concomitant]
     Active Substance: GLYCOSAMINOGLYCANS
     Dosage: UNK
     Route: 065
  8. RIFAXIMIN [Concomitant]
     Active Substance: RIFAXIMIN
     Dosage: UNK
     Route: 065
  9. LACTULOSE [Concomitant]
     Active Substance: LACTULOSE
     Dosage: UNK
     Route: 065
  10. UNSPECIFIED INGREDIENT [Concomitant]
     Active Substance: UNSPECIFIED INGREDIENT
     Dosage: UNK
     Route: 065
  11. VONOPRAZAN FUMARATE [Concomitant]
     Active Substance: VONOPRAZAN FUMARATE
     Dosage: UNK
     Route: 065
  12. ZINC [Concomitant]
     Active Substance: ZINC
     Dosage: UNK
     Route: 065
  13. ALOSENN [SENNOSIDE A+B] [Concomitant]
     Dosage: UNK
     Route: 065
  14. CORTRIL [Concomitant]
     Active Substance: HYDROCORTISONE
     Dosage: UNK
     Route: 065
  15. LEVOTHYROXINE SODIUM [Concomitant]
     Active Substance: LEVOTHYROXINE SODIUM
     Dosage: UNK
     Route: 065
  16. CALONAL [Concomitant]
     Active Substance: ACETAMINOPHEN
     Dosage: UNK
     Route: 065
     Dates: start: 202202

REACTIONS (5)
  - Pancytopenia [Recovered/Resolved]
  - Hepatic encephalopathy [Unknown]
  - Pneumonia [Unknown]
  - Tremor [Unknown]
  - Nausea [Unknown]

NARRATIVE: CASE EVENT DATE: 20220223
